FAERS Safety Report 25835252 (Version 1)
Quarter: 2025Q3

REPORT INFORMATION
  Report Type: Other
  Country: US (occurrence: US)
  Receive Date: 20250923
  Receipt Date: 20250923
  Transmission Date: 20251021
  Serious: Yes (Hospitalization)
  Sender: ITALFARMACO SPA
  Company Number: US-ITALFARMACO SPA-2185102

PATIENT
  Age: 16 Year
  Sex: Male
  Weight: 101.4 kg

DRUGS (11)
  1. DUVYZAT [Suspect]
     Active Substance: GIVINOSTAT
     Indication: Duchenne muscular dystrophy
     Dates: start: 20250811
  2. DEFLAZACORT [Concomitant]
     Active Substance: DEFLAZACORT
  3. TESTOSTERONE [Concomitant]
     Active Substance: TESTOSTERONE
  4. FLUTICASONE [Concomitant]
     Active Substance: FLUTICASONE
  5. LISINOPRIL [Concomitant]
     Active Substance: LISINOPRIL
  6. METFORMIN [Concomitant]
     Active Substance: METFORMIN HYDROCHLORIDE
  7. ATALUREN [Concomitant]
     Active Substance: ATALUREN
  8. TUMUS ACID [Concomitant]
  9. VITAMIN D [Concomitant]
     Active Substance: VITAMIN D NOS
  10. VITAMIN B6 [Concomitant]
     Active Substance: PYRIDOXINE HYDROCHLORIDE
  11. OMEPRAZOLE [Concomitant]
     Active Substance: OMEPRAZOLE

REACTIONS (6)
  - Abdominal pain upper [Not Recovered/Not Resolved]
  - Gastritis [Recovered/Resolved]
  - Heart rate increased [Recovered/Resolved]
  - Nausea [Not Recovered/Not Resolved]
  - Product dose omission issue [Not Recovered/Not Resolved]
  - Vomiting [Recovered/Resolved]

NARRATIVE: CASE EVENT DATE: 20250812
